FAERS Safety Report 4866020-8 (Version None)
Quarter: 2005Q4

REPORT INFORMATION
  Report Type: 
  Country: None (occurrence: None)
  Receive Date: 20051221
  Receipt Date: 20051212
  Transmission Date: 20060501
  Serious: Yes (Other)
  Sender: FDA-Public Use
  Company Number: 2005-135760-NL

PATIENT
  Age: 20 Year
  Sex: Female

DRUGS (2)
  1. MIRTAZAPINE [Suspect]
     Dosage: 15 MG QD
  2. VALPROATE SODIUM [Concomitant]

REACTIONS (2)
  - DYSPNOEA [None]
  - WHEEZING [None]
